FAERS Safety Report 17753764 (Version 2)
Quarter: 2021Q1

REPORT INFORMATION
  Report Type: Spontaneous
  Country: FR (occurrence: FR)
  Receive Date: 20200507
  Receipt Date: 20210220
  Transmission Date: 20210419
  Serious: Yes (Hospitalization, Other)
  Sender: FDA-Public Use
  Company Number: FR-AUROBINDO-AUR-APL-2020-021989

PATIENT
  Age: 26 Year
  Sex: Female
  Weight: 180 kg

DRUGS (6)
  1. COLECALCIFEROL [Concomitant]
     Active Substance: CHOLECALCIFEROL
     Indication: PRODUCT USED FOR UNKNOWN INDICATION
     Dosage: UNK
     Route: 065
  2. MAGNESIUM [Suspect]
     Active Substance: MAGNESIUM
     Indication: HYPOCALCAEMIA
     Dosage: 600 MILLIGRAM, ONCE A DAY
     Route: 048
  3. CALCIUM GLUCONATE. [Suspect]
     Active Substance: CALCIUM GLUCONATE
     Indication: HYPOCALCAEMIA
     Dosage: UNK
     Route: 042
  4. CALCIUM CARBONATE. [Suspect]
     Active Substance: CALCIUM CARBONATE
     Indication: HYPOCALCAEMIA
     Dosage: 4.5 GRAM, ONCE A DAY
     Route: 048
  5. ALFACALCIDOL [Suspect]
     Active Substance: ALFACALCIDOL
     Indication: HYPOCALCAEMIA
     Dosage: 4.5 MICROGRAM, ONCE A DAY
     Route: 048
  6. TERIPARATIDE [Suspect]
     Active Substance: TERIPARATIDE
     Indication: HYPOCALCAEMIA
     Dosage: 40 MICROGRAM, ONCE A DAY
     Route: 058

REACTIONS (3)
  - Off label use [Unknown]
  - Drug ineffective [Unknown]
  - Therapy non-responder [Unknown]
